FAERS Safety Report 9447769 (Version 1)
Quarter: 2013Q3

REPORT INFORMATION
  Report Type: Spontaneous
  Country: US (occurrence: None)
  Receive Date: 20130807
  Receipt Date: 20130807
  Transmission Date: 20140515
  Serious: No
  Sender: FDA-Public Use
  Company Number: None

PATIENT
  Age: 57 None
  Sex: Female

DRUGS (3)
  1. SYNTHROID [Suspect]
     Indication: THYROID CANCER
     Dosage: 150 1 PER MORNING, MOUTH EMPTY STOMACHE
     Route: 048
     Dates: start: 20130101
  2. PREMPRO [Concomitant]
  3. WOMENS VITAMINS [Concomitant]

REACTIONS (5)
  - Head titubation [None]
  - Headache [None]
  - Abdominal pain upper [None]
  - Muscle spasms [None]
  - Tension headache [None]
